FAERS Safety Report 7678449-3 (Version None)
Quarter: 2011Q3

REPORT INFORMATION
  Report Type: 
  Country: None (occurrence: None)
  Receive Date: 20110811
  Receipt Date: 20110803
  Transmission Date: 20111222
  Serious: Yes (Hospitalization, Other)
  Sender: FDA-Public Use
  Company Number: US-BAYER-2011-028925

PATIENT
  Age: 30 Year
  Sex: Female
  Weight: 81.633 kg

DRUGS (6)
  1. TYLENOL-500 [Concomitant]
     Indication: HEADACHE
     Dosage: UNK UNK, QID
     Dates: start: 20100101
  2. ANTIBIOTICS [Concomitant]
     Dosage: UNK
     Dates: start: 20030101
  3. MOTRIN [Concomitant]
     Indication: MUSCLE SPASMS
     Dosage: UNK UNK, Q4HR
     Dates: start: 20000101
  4. YAZ [Suspect]
     Dosage: UNK
     Dates: start: 20080101
  5. ADVIL LIQUI-GELS [Concomitant]
     Dosage: UNK UNK, PRN
     Dates: start: 20000101
  6. DROSPIRENONE AND ETHINYL ESTRADIOL [Suspect]
     Dosage: UNK
     Dates: start: 20080101

REACTIONS (5)
  - MENTAL DISORDER [None]
  - CHOLECYSTITIS CHRONIC [None]
  - CHOLELITHIASIS [None]
  - ABDOMINAL PAIN [None]
  - GALLBLADDER DISORDER [None]
